FAERS Safety Report 15193301 (Version 1)
Quarter: 2018Q3

REPORT INFORMATION
  Report Type: Report from Study
  Country: US (occurrence: US)
  Receive Date: 20180725
  Receipt Date: 20180725
  Transmission Date: 20181010
  Serious: No
  Sender: FDA-Public Use
  Company Number: PHEH2018US030474

PATIENT
  Sex: Male

DRUGS (2)
  1. ENTRESTO [Suspect]
     Active Substance: SACUBITRIL\VALSARTAN
     Dosage: 1 DF, UNK (SACUBITRIL 97 MG, VALSARTAN 103MG)
     Route: 048
  2. ENTRESTO [Suspect]
     Active Substance: SACUBITRIL\VALSARTAN
     Indication: CARDIAC FAILURE CONGESTIVE
     Dosage: 1 DF, UNK (SACUBITRIL 49 MG, VALSARTAN 51 MG)
     Route: 048

REACTIONS (3)
  - Blood pressure increased [Recovered/Resolved]
  - Blood glucose abnormal [Recovered/Resolved]
  - Drug ineffective [Unknown]
